FAERS Safety Report 13048247 (Version 1)
Quarter: 2016Q4

REPORT INFORMATION
  Report Type: Spontaneous
  Country: US (occurrence: US)
  Receive Date: 20161220
  Receipt Date: 20161220
  Transmission Date: 20170207
  Serious: Yes (Other)
  Sender: FDA-Public Use
  Company Number: None

PATIENT
  Age: 47 Year
  Sex: Female
  Weight: 73.8 kg

DRUGS (1)
  1. TRADJENTA [Suspect]
     Active Substance: LINAGLIPTIN
     Indication: TYPE 2 DIABETES MELLITUS
     Dosage: ?          QUANTITY:1 TABLET(S);?
     Route: 048

REACTIONS (11)
  - Blood glucose increased [None]
  - Glycosylated haemoglobin increased [None]
  - Paranasal sinus discomfort [None]
  - Ear discomfort [None]
  - Drug ineffective [None]
  - Nasopharyngitis [None]
  - Headache [None]
  - Sinusitis [None]
  - Nasal congestion [None]
  - Oropharyngeal pain [None]
  - Nausea [None]

NARRATIVE: CASE EVENT DATE: 20161220
